FAERS Safety Report 7334930-8 (Version None)
Quarter: 2011Q1

REPORT INFORMATION
  Report Type: 
  Country: None (occurrence: None)
  Receive Date: 20110307
  Receipt Date: 20110224
  Transmission Date: 20110831
  Serious: Yes (Other)
  Sender: FDA-Public Use
  Company Number: RU-NOVOPROD-324077

PATIENT
  Age: 60 Year
  Sex: Female

DRUGS (4)
  1. ENALAPRIL [Concomitant]
     Indication: HYPERTENSION
     Dosage: 5 MG, QD
     Route: 048
  2. PROTAPHANE HM PENFILL [Suspect]
     Indication: TYPE 2 DIABETES MELLITUS
     Dosage: 14-0-12 IU, QD
     Route: 058
     Dates: start: 20110203
  3. ACTRAPID HM PENFILL [Concomitant]
     Indication: TYPE 2 DIABETES MELLITUS
     Dosage: UNK
     Dates: start: 20110203
  4. METFORMIN [Concomitant]
     Indication: TYPE 2 DIABETES MELLITUS
     Dosage: 0.85 G, QD
     Route: 048
     Dates: start: 20100801

REACTIONS (3)
  - PRURITUS [None]
  - FACE OEDEMA [None]
  - ERYTHEMA [None]
